FAERS Safety Report 19751120 (Version 1)
Quarter: 2021Q3

REPORT INFORMATION
  Report Type: Spontaneous
  Country: GB (occurrence: GB)
  Receive Date: 20210826
  Receipt Date: 20210826
  Transmission Date: 20211014
  Serious: Yes (Life-Threatening, Hospitalization, Other)
  Sender: FDA-Public Use
  Company Number: GB-AMGEN-GBRSP2021128398

PATIENT
  Age: 15 Year
  Sex: Female

DRUGS (9)
  1. METHYLPREDNISOLONE. [Concomitant]
     Active Substance: METHYLPREDNISOLONE
     Route: 042
  2. PREDNISOLONE. [Concomitant]
     Active Substance: PREDNISOLONE
  3. CYCLOPHOSPHAMIDE. [Concomitant]
     Active Substance: CYCLOPHOSPHAMIDE
  4. ADALIMUMAB [Suspect]
     Active Substance: ADALIMUMAB
     Indication: OFF LABEL USE
  5. METHOTREXATE. [Concomitant]
     Active Substance: METHOTREXATE
     Dosage: UNK, QWK
     Route: 058
  6. RITUXIMAB. [Concomitant]
     Active Substance: RITUXIMAB
  7. EPINEPHRINE. [Concomitant]
     Active Substance: EPINEPHRINE
  8. ADALIMUMAB [Suspect]
     Active Substance: ADALIMUMAB
     Indication: POLYCHONDRITIS
     Dosage: UNK UNK, Q2WK
     Route: 058
  9. BUDESONIDE. [Concomitant]
     Active Substance: BUDESONIDE

REACTIONS (5)
  - Laryngeal stenosis [Recovered/Resolved]
  - Excessive granulation tissue [Recovered/Resolved]
  - Polychondritis [Recovered/Resolved]
  - Pneumothorax [Recovered/Resolved]
  - Off label use [Unknown]
